FAERS Safety Report 13611362 (Version 1)
Quarter: 2017Q2

REPORT INFORMATION
  Report Type: Spontaneous
  Country: US (occurrence: US)
  Receive Date: 20170210
  Receipt Date: 20170210
  Transmission Date: 20170830
  Serious: No
  Sender: FDA-Public Use
  Company Number: US-KEDRION-2017-15

PATIENT
  Age: 19 Year
  Sex: Female

DRUGS (1)
  1. RHOGAM [Suspect]
     Active Substance: HUMAN RHO(D) IMMUNE GLOBULIN
     Indication: HAEMORRHAGE IN PREGNANCY
     Dates: start: 20161016, end: 20161016

REACTIONS (2)
  - Injection site rash [Unknown]
  - Injection site hypersensitivity [Unknown]

NARRATIVE: CASE EVENT DATE: 201610
